FAERS Safety Report 4750678-8 (Version None)
Quarter: 2005Q3

REPORT INFORMATION
  Report Type: 
  Country: None (occurrence: None)
  Receive Date: 20050823
  Receipt Date: 20050729
  Transmission Date: 20060218
  Serious: Yes (Other)
  Sender: FDA-Public Use
  Company Number: US-AMGEN-US144608

PATIENT
  Sex: Female

DRUGS (5)
  1. SENSIPAR [Suspect]
     Indication: HYPERPARATHYROIDISM SECONDARY
     Dates: start: 20050701, end: 20050712
  2. IRON [Concomitant]
  3. CALTRATE [Concomitant]
  4. ASCORBIC ACID [Concomitant]
  5. PREMARIN [Concomitant]

REACTIONS (1)
  - OPTIC NEUROPATHY [None]
